FAERS Safety Report 11844130 (Version 1)
Quarter: 2015Q4

REPORT INFORMATION
  Report Type: Spontaneous
  Country: US (occurrence: US)
  Receive Date: 20151217
  Receipt Date: 20151217
  Transmission Date: 20160305
  Serious: Yes (Hospitalization)
  Sender: FDA-Public Use
  Company Number: US-IROKO PHARMACEUTICALS LLC-IND1-US-2010-0005

PATIENT
  Age: 39 Year
  Sex: Male

DRUGS (2)
  1. INDOMETHACIN AMBIGUOUS [Suspect]
     Active Substance: INDOMETHACIN
     Indication: GOUT
     Dates: start: 1999
  2. ACETAMINOPHEN (+) PROPOXYPHENE NAPSYLATE [Suspect]
     Active Substance: ACETAMINOPHEN\PROPOXYPHENE NAPSYLATE
     Route: 065

REACTIONS (3)
  - Palpitations [None]
  - Hyperhidrosis [None]
  - Anxiety [None]

NARRATIVE: CASE EVENT DATE: 1999
